FAERS Safety Report 7635208-5 (Version None)
Quarter: 2011Q3

REPORT INFORMATION
  Report Type: 
  Country: None (occurrence: None)
  Receive Date: 20110718
  Receipt Date: 20110706
  Transmission Date: 20111222
  Serious: Yes (Life-Threatening, Hospitalization)
  Sender: FDA-Public Use
  Company Number: 2011VY000026

PATIENT
  Age: 57 Year
  Sex: Female

DRUGS (2)
  1. NAPRELAN [Suspect]
     Indication: METATARSALGIA
     Dosage: 500 MG; PRN; PO
     Route: 048
  2. ANALGESICS [Concomitant]

REACTIONS (5)
  - CARDIAC ARREST [None]
  - DEHYDRATION [None]
  - BALANCE DISORDER [None]
  - CORONARY ARTERY OCCLUSION [None]
  - COLLATERAL CIRCULATION [None]
